FAERS Safety Report 6707279-1 (Version None)
Quarter: 2010Q2

REPORT INFORMATION
  Report Type: 
  Country: None (occurrence: None)
  Receive Date: 20100503
  Receipt Date: 20091014
  Transmission Date: 20101027
  Serious: No
  Sender: FDA-Public Use
  Company Number: US-ASTRAZENECA-2009SE20121

PATIENT
  Age: 22337 Day
  Sex: Female
  Weight: 58.1 kg

DRUGS (1)
  1. NEXIUM [Suspect]
     Indication: GASTROOESOPHAGEAL REFLUX DISEASE
     Route: 048
     Dates: start: 20091003

REACTIONS (4)
  - HEADACHE [None]
  - OCULAR HYPERAEMIA [None]
  - THINKING ABNORMAL [None]
  - VISUAL IMPAIRMENT [None]
